FAERS Safety Report 16145452 (Version 6)
Quarter: 2019Q4

REPORT INFORMATION
  Report Type: Report from Study
  Country: US (occurrence: US)
  Receive Date: 20190402
  Receipt Date: 20191023
  Transmission Date: 20200122
  Serious: Yes (Other)
  Sender: FDA-Public Use
  Company Number: US-ROCHE-2289295

PATIENT
  Age: 68 Year
  Sex: Female
  Weight: 59.02 kg

DRUGS (6)
  1. GABAPENTIN. [Concomitant]
     Active Substance: GABAPENTIN
  2. CETRIZINE [Concomitant]
     Active Substance: CETIRIZINE HYDROCHLORIDE
  3. NYSTATIN. [Concomitant]
     Active Substance: NYSTATIN
     Route: 065
  4. OCREVUS [Suspect]
     Active Substance: OCRELIZUMAB
     Indication: RELAPSING MULTIPLE SCLEROSIS
     Dosage: PREVIOUS INFUSION WAS 30/SEP/2019
     Route: 042
     Dates: start: 20180521
  5. LISINOPRIL. [Concomitant]
     Active Substance: LISINOPRIL
  6. VYTORIN [Concomitant]
     Active Substance: EZETIMIBE\SIMVASTATIN

REACTIONS (3)
  - Weight decreased [Unknown]
  - Irritable bowel syndrome [Unknown]
  - Large intestine infection [Recovered/Resolved]

NARRATIVE: CASE EVENT DATE: 20190329
